FAERS Safety Report 8092215-9 (Version None)
Quarter: 2012Q1

REPORT INFORMATION
  Report Type: 
  Country: None (occurrence: None)
  Receive Date: 20120129
  Receipt Date: 20111109
  Transmission Date: 20120608
  Serious: No
  Sender: FDA-Public Use
  Company Number: US-ABBOTT-11P-163-0873129-00

PATIENT
  Age: 34 Year
  Sex: Male

DRUGS (7)
  1. CLONAZEPAM [Concomitant]
     Indication: ANXIETY
  2. FLUTICASONE PROPIONATE [Concomitant]
     Indication: PRODUCT USED FOR UNKNOWN INDICATION
     Route: 045
  3. CALCIUM CITRATE [Concomitant]
     Indication: MINERAL SUPPLEMENTATION
  4. LORATADINE [Concomitant]
     Indication: HYPERSENSITIVITY
  5. HUMIRA [Suspect]
     Indication: CROHN'S DISEASE
     Dates: start: 20110901
  6. PAXIL [Concomitant]
     Indication: ANXIETY
  7. IMURAN [Concomitant]
     Indication: CROHN'S DISEASE

REACTIONS (4)
  - INJECTION SITE ERYTHEMA [None]
  - INJECTION SITE PAIN [None]
  - GAIT DISTURBANCE [None]
  - PAIN [None]
